FAERS Safety Report 5657369-X (Version None)
Quarter: 2008Q1

REPORT INFORMATION
  Report Type: 
  Country: None (occurrence: None)
  Receive Date: 20080310
  Receipt Date: 20080229
  Transmission Date: 20080703
  Serious: Yes (Hospitalization, Other)
  Sender: FDA-Public Use
  Company Number: PHHY2008BR02460

PATIENT
  Sex: Female

DRUGS (3)
  1. TAMOXIFENO [Suspect]
     Dates: start: 20040101
  2. FEMARA [Suspect]
     Indication: BREAST CANCER
     Dosage: 1 TABLET DAILY
     Route: 048
     Dates: start: 20040101
  3. FEMARA [Suspect]
     Dosage: 1 TABLET DAILY
     Route: 048
     Dates: start: 20071101

REACTIONS (8)
  - ALOPECIA [None]
  - ASTHENIA [None]
  - FATIGUE [None]
  - HAEMORRHAGE [None]
  - HYSTERECTOMY [None]
  - MALAISE [None]
  - SWELLING [None]
  - WEIGHT INCREASED [None]
